APPROVED DRUG PRODUCT: MODAFINIL
Active Ingredient: MODAFINIL
Strength: 100MG
Dosage Form/Route: TABLET;ORAL
Application: A202700 | Product #001 | TE Code: AB
Applicant: ALEMBIC PHARMACEUTICALS LTD
Approved: Oct 18, 2012 | RLD: No | RS: No | Type: RX